FAERS Safety Report 8601241 (Version 4)
Quarter: 2013Q1

REPORT INFORMATION
  Report Type: Spontaneous
  Country: US (occurrence: US)
  Receive Date: 20120606
  Receipt Date: 20130325
  Transmission Date: 20140127
  Serious: Yes (Hospitalization, Other)
  Sender: FDA-Public Use
  Company Number: US-VIROPHARMA INCORPORATED-20120523CINRY2991

PATIENT
  Age: 35 None
  Sex: Female
  Weight: 90.8 kg

DRUGS (20)
  1. CINRYZE (C1 ESTERASE INHIBITOR (HUMAN)) [Suspect]
     Indication: HEREDITARY ANGIOEDEMA
     Dates: start: 20120103, end: 201206
  2. CINRYZE (C1 ESTERASE INHIBITOR (HUMAN)) [Suspect]
     Dates: start: 20120605, end: 20120925
  3. CINRYZE (C1 ESTERASE INHIBITOR (HUMAN)) [Suspect]
     Dates: start: 20120926
  4. ERTAPENEM [Suspect]
     Indication: BRONCHITIS
     Dosage: UNKNOWN
     Route: 065
  5. BERINERT [Concomitant]
     Indication: HEREDITARY ANGIOEDEMA
  6. FIRAZYR [Concomitant]
     Indication: HEREDITARY ANGIOEDEMA
     Route: 058
  7. NORVASC [Concomitant]
     Indication: HYPERTENSION
     Route: 065
  8. MIRAPEX [Concomitant]
     Indication: RESTLESS LEGS SYNDROME
     Route: 065
  9. BUMEX [Concomitant]
     Indication: PRODUCT USED FOR UNKNOWN INDICATION
     Route: 065
  10. K-CHLOR [Concomitant]
     Indication: CARDIAC DISORDER
     Route: 048
  11. BENADRYL [Concomitant]
     Indication: PREMEDICATION
  12. RANEXA [Concomitant]
     Indication: ANGINA PECTORIS
     Route: 065
  13. SINGULAIR [Concomitant]
     Indication: ASTHMA
     Route: 065
  14. ZANTAC [Concomitant]
     Indication: PRODUCT USED FOR UNKNOWN INDICATION
     Route: 065
  15. ZYRTEC [Concomitant]
     Indication: HYPERSENSITIVITY
     Route: 065
  16. ZOFRAN [Concomitant]
     Indication: PREMEDICATION
     Route: 048
  17. ZOFRAN [Concomitant]
     Indication: NAUSEA
  18. ATENOLOL [Concomitant]
     Indication: CARDIAC FIBRILLATION
     Route: 065
  19. CARDIZEM CD [Concomitant]
     Indication: CARDIAC DISORDER
     Route: 048
  20. TOPAMAX [Concomitant]
     Indication: CONVULSION
     Dosage: UNKNOWN
     Route: 065
     Dates: start: 201205

REACTIONS (17)
  - Amnesia [Not Recovered/Not Resolved]
  - Aphasia [Not Recovered/Not Resolved]
  - Thrombophlebitis superficial [Unknown]
  - Balance disorder [Not Recovered/Not Resolved]
  - Transient ischaemic attack [Not Recovered/Not Resolved]
  - Convulsion [Recovered/Resolved]
  - Pneumonia [Recovered/Resolved]
  - Hereditary angioedema [Recovered/Resolved]
  - Angioedema [Recovered/Resolved]
  - Bronchitis [Recovered/Resolved]
  - Dehydration [Recovered/Resolved]
  - Pancreatitis [Recovering/Resolving]
  - Gastric ulcer [Recovering/Resolving]
  - Off label use [Recovered/Resolved]
  - Therapy change [Not Recovered/Not Resolved]
  - Epileptic aura [Recovered/Resolved]
  - Hereditary angioedema [Not Recovered/Not Resolved]
